FAERS Safety Report 21418882 (Version 1)
Quarter: 2022Q4

REPORT INFORMATION
  Report Type: Report from Study
  Country: US (occurrence: US)
  Receive Date: 20221006
  Receipt Date: 20221006
  Transmission Date: 20230113
  Serious: Yes (Other)
  Sender: FDA-Public Use
  Company Number: US-JAZZ-2022-US-031154

PATIENT
  Sex: Female

DRUGS (2)
  1. EPIDIOLEX [Suspect]
     Active Substance: CANNABIDIOL
     Indication: Epilepsy
     Dosage: 6 MILLILITER, BID
  2. EPIDIOLEX [Suspect]
     Active Substance: CANNABIDIOL
     Indication: Epilepsy
     Dosage: 8 MILLILITER, BID
     Route: 048
     Dates: start: 20220709

REACTIONS (5)
  - Seizure [Unknown]
  - Condition aggravated [Unknown]
  - Somnolence [Unknown]
  - Moaning [Unknown]
  - Off label use [Unknown]
